FAERS Safety Report 7161634-7 (Version None)
Quarter: 2010Q4

REPORT INFORMATION
  Report Type: 
  Country: None (occurrence: None)
  Receive Date: 20101215
  Receipt Date: 20101213
  Transmission Date: 20110411
  Serious: Yes (Hospitalization, Other)
  Sender: FDA-Public Use
  Company Number: ES-ROXANE LABORATORIES, INC.-2010-RO-01674RO

PATIENT
  Age: 65 Year
  Sex: Male

DRUGS (4)
  1. METHOTREXATE [Suspect]
     Indication: COLITIS ULCERATIVE
     Dates: start: 20010601, end: 20071101
  2. PREDNISONE [Suspect]
     Indication: COLITIS ULCERATIVE
     Dosage: 5 MG
  3. AZATHIOPRINE [Suspect]
     Indication: COLITIS ULCERATIVE
  4. MERCAPTOPURINE [Suspect]
     Indication: COLITIS ULCERATIVE

REACTIONS (4)
  - COLITIS ULCERATIVE [None]
  - GASTROINTESTINAL DISORDER [None]
  - HUMAN HERPESVIRUS 8 INFECTION [None]
  - KAPOSI'S SARCOMA [None]
